FAERS Safety Report 12754808 (Version 2)
Quarter: 2016Q4

REPORT INFORMATION
  Report Type: Report from Study
  Country: US (occurrence: US)
  Receive Date: 20160915
  Receipt Date: 20161017
  Transmission Date: 20170207
  Serious: Yes (Other)
  Sender: FDA-Public Use
  Company Number: US-ROCHE-1829250

PATIENT
  Sex: Female

DRUGS (1)
  1. RITUXAN [Suspect]
     Active Substance: RITUXIMAB
     Indication: RHEUMATOID ARTHRITIS
     Dosage: 1 DOSE EVERY 2 WEEKS EVERY 4 MONTHS
     Route: 042

REACTIONS (3)
  - Ill-defined disorder [Unknown]
  - Withdrawal syndrome [Unknown]
  - Fatigue [Not Recovered/Not Resolved]
